APPROVED DRUG PRODUCT: LACTULOSE
Active Ingredient: LACTULOSE
Strength: 10GM/15ML
Dosage Form/Route: SOLUTION;ORAL
Application: A218858 | Product #001 | TE Code: AA
Applicant: TARO PHARMACEUTICAL INDUSTRIES LTD
Approved: Dec 13, 2024 | RLD: No | RS: No | Type: RX